FAERS Safety Report 11775340 (Version 1)
Quarter: 2015Q4

REPORT INFORMATION
  Report Type: Spontaneous
  Country: US (occurrence: US)
  Receive Date: 20151125
  Receipt Date: 20151125
  Transmission Date: 20160304
  Serious: Yes (Life-Threatening, Hospitalization)
  Sender: FDA-Public Use
  Company Number: US-ACTELION-A-US2012-77232

PATIENT
  Age: 49 Year
  Sex: Male

DRUGS (14)
  1. VELETRI [Suspect]
     Active Substance: EPOPROSTENOL
     Indication: PULMONARY ARTERIAL HYPERTENSION
     Dosage: 50 NG/KG, PER MIN
     Route: 042
     Dates: start: 20120919, end: 20140217
  2. SILDENAFIL. [Concomitant]
     Active Substance: SILDENAFIL
  3. MVI [Concomitant]
     Active Substance: VITAMINS
  4. ALLOPURINOL. [Concomitant]
     Active Substance: ALLOPURINOL
  5. ZYRTEC [Concomitant]
     Active Substance: CETIRIZINE HYDROCHLORIDE
  6. MAGNESIUM OXIDE. [Concomitant]
     Active Substance: MAGNESIUM OXIDE
  7. CALCIUM + VITAMIN D [Concomitant]
     Active Substance: CALCIUM\VITAMIN D
  8. GABAPENTIN. [Concomitant]
     Active Substance: GABAPENTIN
  9. VELETRI [Suspect]
     Active Substance: EPOPROSTENOL
     Dosage: 44 UNK, UNK
     Route: 041
  10. FLUTICASONE [Concomitant]
     Active Substance: FLUTICASONE\FLUTICASONE PROPIONATE
  11. METFORMIN [Concomitant]
     Active Substance: METFORMIN HYDROCHLORIDE
  12. WARFARIN [Concomitant]
     Active Substance: WARFARIN
  13. VELETRI [Suspect]
     Active Substance: EPOPROSTENOL
     Dosage: 91 NG/KG, PER MIN
     Route: 042
     Dates: start: 20100516
  14. VITAMIN B [Concomitant]
     Active Substance: VITAMIN B

REACTIONS (2)
  - Device occlusion [Recovered/Resolved]
  - No adverse event [Recovered/Resolved]

NARRATIVE: CASE EVENT DATE: 20140214
